FAERS Safety Report 6346128-0 (Version None)
Quarter: 2009Q3

REPORT INFORMATION
  Report Type: 
  Country: None (occurrence: None)
  Receive Date: 20090909
  Receipt Date: 20090902
  Transmission Date: 20100115
  Serious: Yes (Other)
  Sender: FDA-Public Use
  Company Number: AT-MERCK-0909AUT00001

PATIENT
  Sex: Male

DRUGS (2)
  1. ISENTRESS [Suspect]
     Indication: HIV INFECTION
     Route: 065
  2. ESOMEPRAZOLE MAGNESIUM [Concomitant]
     Route: 065

REACTIONS (1)
  - STATUS EPILEPTICUS [None]
